FAERS Safety Report 5823314-7 (Version None)
Quarter: 2008Q3

REPORT INFORMATION
  Report Type: 
  Country: None (occurrence: None)
  Receive Date: 20080725
  Receipt Date: 20070625
  Transmission Date: 20090109
  Serious: No
  Sender: FDA-Public Use
  Company Number: US-AMGEN-KDL231241

PATIENT
  Sex: Female

DRUGS (3)
  1. PROCRIT [Suspect]
     Indication: ANAEMIA OF MALIGNANT DISEASE
     Dates: start: 20060101
  2. ALEVE [Concomitant]
  3. INSULIN [Concomitant]

REACTIONS (3)
  - LETHARGY [None]
  - MUSCULOSKELETAL PAIN [None]
  - NECK PAIN [None]
